FAERS Safety Report 17113097 (Version 1)
Quarter: 2019Q4

REPORT INFORMATION
  Report Type: Spontaneous
  Country: US (occurrence: US)
  Receive Date: 20191204
  Receipt Date: 20191204
  Transmission Date: 20200122
  Serious: Yes (Other)
  Sender: FDA-Public Use
  Company Number: US-JAZZ-JPI-P-024987

PATIENT
  Age: 19 Year
  Sex: Female
  Weight: 77.27 kg

DRUGS (5)
  1. XYREM [Suspect]
     Active Substance: SODIUM OXYBATE
     Indication: NARCOLEPSY
     Route: 048
     Dates: start: 20120823
  2. XYREM [Suspect]
     Active Substance: SODIUM OXYBATE
     Indication: CATAPLEXY
  3. NALTREXONE [Concomitant]
     Active Substance: NALTREXONE
  4. ARMOUR THYROID (THYROID) [Concomitant]
  5. BENTYL (DICYCLOMINE HYDROCHLORIDE) [Concomitant]

REACTIONS (3)
  - Migraine [Not Recovered/Not Resolved]
  - Impaired gastric emptying [Not Recovered/Not Resolved]
  - Condition aggravated [Not Recovered/Not Resolved]

NARRATIVE: CASE EVENT DATE: 20120823
